FAERS Safety Report 15760345 (Version 2)
Quarter: 2019Q1

REPORT INFORMATION
  Report Type: Report from Study
  Country: AU (occurrence: AU)
  Receive Date: 20181226
  Receipt Date: 20190108
  Transmission Date: 20190417
  Serious: Yes (Death, Life-Threatening, Hospitalization, Other)
  Sender: FDA-Public Use
  Company Number: AU-BAYER-2018-235350

PATIENT
  Age: 67 Year
  Sex: Male

DRUGS (2)
  1. STIVARGA [Suspect]
     Active Substance: REGORAFENIB
     Indication: HEPATOCELLULAR CARCINOMA
     Dosage: 160 MG, QD
     Route: 048
  2. STIVARGA [Suspect]
     Active Substance: REGORAFENIB
     Indication: HEPATOCELLULAR CARCINOMA
     Dosage: 120MG DAILY FOR 3 WEEKS ON/ 1 WEEK OFF
     Route: 048
     Dates: start: 20180616, end: 20181210

REACTIONS (5)
  - Acute myocardial infarction [Fatal]
  - Cardiac arrest [Recovered/Resolved]
  - Respiratory distress [Not Recovered/Not Resolved]
  - Dyspnoea paroxysmal nocturnal [None]
  - Chest pain [Not Recovered/Not Resolved]

NARRATIVE: CASE EVENT DATE: 20181210
